FAERS Safety Report 9365443 (Version 1)
Quarter: 2013Q2

REPORT INFORMATION
  Report Type: Spontaneous
  Country: US (occurrence: US)
  Receive Date: 20130625
  Receipt Date: 20130625
  Transmission Date: 20140414
  Serious: No
  Sender: FDA-Public Use
  Company Number: US-BIOGENIDEC-2013BI054396

PATIENT
  Sex: Female

DRUGS (1)
  1. AVONEX [Suspect]
     Indication: MULTIPLE SCLEROSIS
     Route: 030
     Dates: start: 20060918

REACTIONS (3)
  - Clumsiness [Recovered/Resolved with Sequelae]
  - Sinus congestion [Not Recovered/Not Resolved]
  - Influenza like illness [Recovered/Resolved with Sequelae]
